FAERS Safety Report 14860539 (Version 5)
Quarter: 2018Q4

REPORT INFORMATION
  Report Type: Spontaneous
  Country: IT (occurrence: IT)
  Receive Date: 20180508
  Receipt Date: 20181220
  Transmission Date: 20190204
  Serious: Yes (Hospitalization, Other)
  Sender: FDA-Public Use
  Company Number: IT-PFIZER INC-2018187625

PATIENT
  Age: 60 Year
  Sex: Female
  Weight: 50 kg

DRUGS (10)
  1. AMICASIL [Suspect]
     Active Substance: AMIKACIN SULFATE
     Indication: URINARY TRACT INFECTION
     Dosage: 750 MG, 1X/DAY
     Route: 042
     Dates: start: 20180307, end: 20180314
  2. LOVENOX [Concomitant]
     Active Substance: ENOXAPARIN SODIUM
     Dosage: 250 MG, 4X/DAY
  3. OXYCONTIN [Concomitant]
     Active Substance: OXYCODONE HYDROCHLORIDE
     Dosage: 20 MG, 2X/DAY
  4. OLIMEL [Concomitant]
     Active Substance: AMINO ACIDS\DEXTROSE\SOYBEAN OIL
     Dosage: UNK
  5. PANTORC [Concomitant]
     Active Substance: PANTOPRAZOLE SODIUM
     Dosage: 20 MG, 1X/DAY
  6. TYGACIL [Suspect]
     Active Substance: TIGECYCLINE
     Indication: URINARY TRACT INFECTION
     Dosage: 200 MG, 1X/DAY
     Route: 042
     Dates: start: 20180307, end: 20180314
  7. COLIMICINA /00013206/ [Suspect]
     Active Substance: COLISTIMETHATE SODIUM
     Indication: URINARY TRACT INFECTION
     Dosage: 4500000 MILLION IU, 1X/DAY
     Route: 042
     Dates: start: 20180307, end: 20180312
  8. FERROGRAD /00023506/ [Concomitant]
     Active Substance: FERROUS SULFATE
     Dosage: UNK
  9. ENSURE [Concomitant]
     Active Substance: AMINO ACIDS\DEXTROSE\ELECTROLYTES NOS\SOYBEAN OIL\VITAMINS
     Dosage: UNK
  10. CLEXANE [Concomitant]
     Active Substance: ENOXAPARIN SODIUM
     Dosage: UNK

REACTIONS (1)
  - Acute kidney injury [Recovered/Resolved]

NARRATIVE: CASE EVENT DATE: 20180312
